FAERS Safety Report 24376603 (Version 1)
Quarter: 2024Q3

REPORT INFORMATION
  Report Type: Spontaneous
  Country: US (occurrence: US)
  Receive Date: 20240930
  Receipt Date: 20240930
  Transmission Date: 20241017
  Serious: No
  Sender: LEADING PHARMA
  Company Number: US-LEADINGPHARMA-US-2024LEASPO00437

PATIENT
  Age: 78 Year
  Sex: Female

DRUGS (1)
  1. LORAZEPAM [Suspect]
     Active Substance: LORAZEPAM
     Indication: Sleep disorder
     Route: 048

REACTIONS (4)
  - Dysgeusia [Unknown]
  - Drug ineffective [Unknown]
  - Product taste abnormal [Unknown]
  - Product size issue [Unknown]
